FAERS Safety Report 4905715-4 (Version None)
Quarter: 2006Q1

REPORT INFORMATION
  Report Type: 
  Country: None (occurrence: None)
  Receive Date: 20060206
  Receipt Date: 20060123
  Transmission Date: 20060701
  Serious: Yes (Death, Hospitalization)
  Sender: FDA-Public Use
  Company Number: 2006015649

PATIENT
  Age: 65 Year
  Sex: Female

DRUGS (5)
  1. GLIBENCLAMIDE TABLET (GLIBENCLAMIDE) [Suspect]
     Indication: ILL-DEFINED DISORDER
  2. METFORMIN HCL [Suspect]
     Indication: ILL-DEFINED DISORDER
  3. CYCLOPHOSPHAMIDE [Concomitant]
  4. DOXORUBICIN (DOXORUBICIN) [Concomitant]
  5. DOCETAXEL (DOCETAXEL) [Concomitant]

REACTIONS (8)
  - ANOREXIA [None]
  - COMA [None]
  - DRY MOUTH [None]
  - FATIGUE [None]
  - HYPOGLYCAEMIA [None]
  - HYPOXIA [None]
  - LOSS OF CONSCIOUSNESS [None]
  - SOMNOLENCE [None]
